FAERS Safety Report 6468100-2 (Version None)
Quarter: 2009Q4

REPORT INFORMATION
  Report Type: 
  Country: None (occurrence: None)
  Receive Date: 20091127
  Receipt Date: 20091113
  Transmission Date: 20100525
  Serious: Yes (Hospitalization)
  Sender: FDA-Public Use
  Company Number: 8055005

PATIENT
  Age: 48 Year
  Sex: Female

DRUGS (4)
  1. KEPPRA [Suspect]
     Indication: PROPHYLAXIS
     Dosage: PO
     Route: 048
     Dates: start: 20090924
  2. EPANUTIN /00017402/ [Suspect]
     Indication: PROPHYLAXIS
     Dosage: PO
     Route: 048
     Dates: start: 20090924
  3. SERTRALINA MERCK [Concomitant]
  4. NOLOFT /00039592/ [Concomitant]

REACTIONS (1)
  - STEVENS-JOHNSON SYNDROME [None]
